FAERS Safety Report 10060172 (Version 1)
Quarter: 2014Q2

REPORT INFORMATION
  Report Type: Spontaneous
  Country: CH (occurrence: CH)
  Receive Date: 20140404
  Receipt Date: 20140404
  Transmission Date: 20141212
  Serious: Yes (Hospitalization)
  Sender: FDA-Public Use
  Company Number: PHHY2014CH039156

PATIENT
  Age: 83 Year
  Sex: Male

DRUGS (17)
  1. ALLOPUR [Suspect]
     Dosage: 1 DF, QD
     Route: 048
  2. PANTOPRAZOLE [Interacting]
     Dosage: 40 MG, QD
     Route: 048
  3. ATORVASTATIN [Interacting]
     Dosage: 20 MG, QD
     Route: 048
  4. MARCOUMAR [Interacting]
     Indication: ATRIAL FLUTTER
     Route: 048
     Dates: end: 201403
  5. EUTHYROX [Interacting]
     Dosage: 75 UG, QD
     Route: 048
  6. BUDENOFALK [Concomitant]
     Dosage: 3 MG, BID
     Dates: end: 20140224
  7. ALDACTONE [Concomitant]
     Dosage: 25 MG, QD
  8. CELLCEPT [Concomitant]
     Dosage: 500 MG, BID
  9. RAPAMUNE [Concomitant]
     Dosage: 1 MG, QD
  10. FOSAMAX [Concomitant]
     Dosage: 70 MG, QW
  11. TORASEMID [Concomitant]
     Dosage: 200 MG, QD
  12. METOLAZON [Concomitant]
     Dosage: 5 MG, BID
  13. SYMBICORT [Concomitant]
     Dosage: 1 DF, QD
  14. NOVALGIN [Concomitant]
     Dosage: 500 MG
  15. KALIUM [Concomitant]
  16. ZOLDORM [Concomitant]
     Dosage: 10 MG, QD
  17. SIFROL [Concomitant]
     Dosage: 0.125 MG, QD

REACTIONS (4)
  - International normalised ratio increased [Recovered/Resolved]
  - Diverticulitis intestinal haemorrhagic [Recovered/Resolved]
  - Anaemia [Recovering/Resolving]
  - Melaena [Recovered/Resolved]
